FAERS Safety Report 10741707 (Version 4)
Quarter: 2015Q1

REPORT INFORMATION
  Report Type: Spontaneous
  Country: FR (occurrence: FR)
  Receive Date: 20150127
  Receipt Date: 20150304
  Transmission Date: 20150721
  Serious: Yes (Hospitalization, Disabling, Other)
  Sender: FDA-Public Use
  Company Number: FR-IPSEN BIOPHARMACEUTICALS, INC.-2015-1404

PATIENT
  Age: 50 Year
  Sex: Male

DRUGS (4)
  1. DYSPORT 500 UNITES SPEYWOOD [Suspect]
     Active Substance: ABOBOTULINUMTOXINA
     Indication: AUTOMATIC BLADDER
     Dosage: NOT REPORTED
     Route: 065
     Dates: start: 20120207, end: 20120207
  2. DYSPORT 500 UNITES SPEYWOOD [Suspect]
     Active Substance: ABOBOTULINUMTOXINA
     Indication: HYPERTONIC BLADDER
  3. DYSPORT 500 UNITES SPEYWOOD [Suspect]
     Active Substance: ABOBOTULINUMTOXINA
     Indication: PRODUCT USE ISSUE
  4. ANTIDEPRESSANTS [Concomitant]
     Active Substance: UNSPECIFIED INGREDIENT
     Indication: DEPRESSION
     Dosage: NOT REPORTED
     Route: 065

REACTIONS (10)
  - Botulism [Not Recovered/Not Resolved]
  - Depression [Unknown]
  - Therapeutic response unexpected [Unknown]
  - Tendon transfer [Unknown]
  - Anorectal discomfort [Unknown]
  - Insomnia [Recovered/Resolved]
  - Perineal pain [Unknown]
  - Micturition urgency [Not Recovered/Not Resolved]
  - Incorrect route of drug administration [Unknown]
  - Wrong technique in drug usage process [Unknown]

NARRATIVE: CASE EVENT DATE: 2012
